FAERS Safety Report 5060650-9 (Version None)
Quarter: 2006Q3

REPORT INFORMATION
  Report Type: 
  Country: None (occurrence: None)
  Receive Date: 20060719
  Receipt Date: 20060719
  Transmission Date: 20061208
  Serious: No
  Sender: FDA-Public Use
  Company Number: None

PATIENT
  Age: 32 Year
  Sex: Female
  Weight: 49.8957 kg

DRUGS (4)
  1. ZYPREXA [Suspect]
     Indication: BIPOLAR DISORDER
     Dates: start: 19980101, end: 20060717
  2. ZYPREXA [Suspect]
     Indication: SCHIZOAFFECTIVE DISORDER
     Dates: start: 19980101, end: 20060717
  3. ZYPREXA [Concomitant]
  4. SEROQUEL [Concomitant]

REACTIONS (11)
  - ANXIETY [None]
  - DEPRESSION [None]
  - DRUG DEPENDENCE [None]
  - DRUG INEFFECTIVE [None]
  - DRUG WITHDRAWAL SYNDROME [None]
  - FEELING ABNORMAL [None]
  - HALLUCINATION, AUDITORY [None]
  - INAPPROPRIATE SCHEDULE OF DRUG ADMINISTRATION [None]
  - PERFORMANCE STATUS DECREASED [None]
  - SCHIZOAFFECTIVE DISORDER [None]
  - SOMNOLENCE [None]
